FAERS Safety Report 15978849 (Version 2)
Quarter: 2019Q2

REPORT INFORMATION
  Report Type: Spontaneous
  Country: PL (occurrence: PL)
  Receive Date: 20190219
  Receipt Date: 20190524
  Transmission Date: 20190711
  Serious: Yes (Death, Hospitalization)
  Sender: FDA-Public Use
  Company Number: PL-ROCHE-2258099

PATIENT
  Age: 59 Year
  Sex: Male

DRUGS (16)
  1. VANCOMYCIN [Suspect]
     Active Substance: VANCOMYCIN
     Indication: ADJUVANT THERAPY
     Dosage: DOSAGE FORM: UNSPECIFIED
     Route: 065
  2. BENDAMUSTINE [Concomitant]
     Active Substance: BENDAMUSTINE
     Indication: WALDENSTROM^S MACROGLOBULINAEMIA
     Dosage: 9X
     Route: 065
  3. BORTEZOMIB. [Suspect]
     Active Substance: BORTEZOMIB
     Indication: WALDENSTROM^S MACROGLOBULINAEMIA
     Dosage: R-BOR-D REGIMEN
     Route: 065
  4. AMIKACIN. [Suspect]
     Active Substance: AMIKACIN
     Indication: ADJUVANT THERAPY
     Dosage: DOSAGE FORM: UNSPECIFIED
     Route: 065
  5. DEXAMETHASONE. [Suspect]
     Active Substance: DEXAMETHASONE
     Dosage: R-BOR-D REGIMEN
     Route: 065
  6. LEUKERAN [Concomitant]
     Active Substance: CHLORAMBUCIL
     Indication: WALDENSTROM^S MACROGLOBULINAEMIA
     Route: 065
  7. THALIDOMIDE [Concomitant]
     Active Substance: THALIDOMIDE
     Indication: WALDENSTROM^S MACROGLOBULINAEMIA
  8. CEFEPIME [Suspect]
     Active Substance: CEFEPIME HYDROCHLORIDE
     Indication: ADJUVANT THERAPY
     Dosage: DOSAGE FORM: UNSPECIFIED
     Route: 065
  9. RITUXIMAB. [Suspect]
     Active Substance: RITUXIMAB
     Dosage: R-BOR-D REGIMEN
     Route: 065
  10. ACICLOVIR [Suspect]
     Active Substance: ACYCLOVIR
     Indication: ADJUVANT THERAPY
     Dosage: DOSAGE FORM: UNSPECIFIED
     Route: 065
  11. RITUXIMAB. [Suspect]
     Active Substance: RITUXIMAB
     Indication: WALDENSTROM^S MACROGLOBULINAEMIA
     Route: 065
  12. CIPROFLOXACIN. [Suspect]
     Active Substance: CIPROFLOXACIN
     Indication: ADJUVANT THERAPY
     Dosage: DOSAGE FORM: UNSPECIFIED
     Route: 065
  13. MEROPENEM. [Suspect]
     Active Substance: MEROPENEM
     Indication: ADJUVANT THERAPY
     Dosage: DOSAGE FORM: UNSPECIFIED
     Route: 065
  14. TIGECYCLINE. [Suspect]
     Active Substance: TIGECYCLINE
     Indication: ADJUVANT THERAPY
     Dosage: DOSAGE FORM: UNSPECIFIED
     Route: 065
  15. DEXAMETHASONE. [Suspect]
     Active Substance: DEXAMETHASONE
     Indication: WALDENSTROM^S MACROGLOBULINAEMIA
     Dosage: REPORTED AS DEXAMETHASONE SALT NOT SPECIFIED.
     Route: 065
  16. FLUCONAZOLE. [Suspect]
     Active Substance: FLUCONAZOLE
     Indication: ADJUVANT THERAPY
     Dosage: DOSAGE FORM: UNSPECIFIED
     Route: 065

REACTIONS (18)
  - Inflammation [Fatal]
  - Thrombocytopenia [Fatal]
  - Anaemia [Fatal]
  - Off label use [Fatal]
  - Blood pressure decreased [Fatal]
  - Septic shock [Fatal]
  - Dysphagia [Fatal]
  - Tenderness [Not Recovered/Not Resolved]
  - Drug ineffective [Fatal]
  - Cachexia [Fatal]
  - Asthenia [Fatal]
  - Abdominal pain upper [Fatal]
  - Enterococcal infection [Not Recovered/Not Resolved]
  - Weight decreased [Fatal]
  - Intentional product use issue [Fatal]
  - Palpitations [Fatal]
  - Body temperature increased [Fatal]
  - General physical condition abnormal [Fatal]

NARRATIVE: CASE EVENT DATE: 2017
